FAERS Safety Report 9268665 (Version 2)
Quarter: 2013Q4

REPORT INFORMATION
  Report Type: Report from Study
  Country: US (occurrence: US)
  Receive Date: 20130502
  Receipt Date: 20131126
  Transmission Date: 20140711
  Serious: Yes (Hospitalization, Other)
  Sender: FDA-Public Use
  Company Number: US-ALEXION-A201300596

PATIENT
  Age: 42 Year
  Sex: Female
  Weight: 81.63 kg

DRUGS (4)
  1. SOLIRIS [Suspect]
     Indication: PAROXYSMAL NOCTURNAL HAEMOGLOBINURIA
     Dosage: 600 MG, QW
     Route: 042
     Dates: start: 20050810, end: 200509
  2. FOLIC ACID [Concomitant]
  3. POTASSIUM [Concomitant]
  4. ALLOPURINOL [Concomitant]

REACTIONS (6)
  - Stent placement [Recovered/Resolved]
  - Renal stone removal [Recovered/Resolved]
  - Stent removal [Recovered/Resolved with Sequelae]
  - Haemolysis [Recovered/Resolved]
  - Pyrexia [Recovered/Resolved]
  - Bacteroides bacteraemia [Recovered/Resolved]
